FAERS Safety Report 9782594 (Version 1)
Quarter: 2013Q4

REPORT INFORMATION
  Report Type: Spontaneous
  Country: US (occurrence: US)
  Receive Date: 20131226
  Receipt Date: 20131226
  Transmission Date: 20140711
  Serious: No
  Sender: FDA-Public Use
  Company Number: US-TEVA-451948USA

PATIENT
  Age: 47 Year
  Sex: Female

DRUGS (1)
  1. COPAXONE [Suspect]
     Indication: RELAPSING-REMITTING MULTIPLE SCLEROSIS
     Dates: start: 201104, end: 20131210

REACTIONS (10)
  - Immediate post-injection reaction [Recovered/Resolved]
  - Burning sensation [Not Recovered/Not Resolved]
  - Dyspnoea [Recovered/Resolved]
  - Sensory disturbance [Recovered/Resolved]
  - Chest discomfort [Recovered/Resolved]
  - Nausea [Recovered/Resolved]
  - Adverse event [Recovered/Resolved]
  - Glossodynia [Not Recovered/Not Resolved]
  - Oral discomfort [Not Recovered/Not Resolved]
  - Burning sensation [Not Recovered/Not Resolved]
